FAERS Safety Report 23493618 (Version 1)
Quarter: 2024Q1

REPORT INFORMATION
  Report Type: Spontaneous
  Country: GB (occurrence: GB)
  Receive Date: 20240207
  Receipt Date: 20240207
  Transmission Date: 20240410
  Serious: Yes (Life-Threatening)
  Sender: FDA-Public Use
  Company Number: GB-MHRA-TPP24244753C19478357YC1706871603403

PATIENT
  Age: 24 Year
  Sex: Male
  Weight: 114 kg

DRUGS (2)
  1. DICLOFENAC [Suspect]
     Active Substance: DICLOFENAC
     Indication: Ill-defined disorder
     Dosage: UNK
     Route: 065
     Dates: start: 20240202
  2. METHADONE [Concomitant]
     Active Substance: METHADONE HYDROCHLORIDE
     Indication: Ill-defined disorder
     Dosage: 30 DF (30 ML (SUPERVISED))
     Route: 065
     Dates: start: 20231214, end: 20231221

REACTIONS (1)
  - Rash [Recovered/Resolved]

NARRATIVE: CASE EVENT DATE: 20240202
